FAERS Safety Report 9110473 (Version 1)
Quarter: 2013Q1

REPORT INFORMATION
  Report Type: Spontaneous
  Country: US (occurrence: US)
  Receive Date: 20130219
  Receipt Date: 20130219
  Transmission Date: 20140127
  Serious: Yes (Hospitalization)
  Sender: FDA-Public Use
  Company Number: US-BRACCO-008982

PATIENT
  Age: 75 Year
  Sex: Female
  Weight: 100 kg

DRUGS (17)
  1. FUROSEMIDE [Concomitant]
     Dosage: 20 MG ON MONDAY, WEDNESDAY AND FRIDAY FOR 3 MONTHS
     Route: 048
  2. ASPIRIN [Concomitant]
     Route: 048
  3. LEVOTHYROXINE [Concomitant]
     Route: 048
  4. INSULIN GLARGINE [Concomitant]
     Dosage: TAKE 40 UNITS IN THE MORNING AND 5 UNITS AT BEDTIME
     Route: 058
  5. LISINOPRIL [Concomitant]
     Route: 048
  6. SIMVASTATIN [Concomitant]
     Route: 048
  7. VERAPAMIL [Concomitant]
     Route: 048
  8. INSULIN LISPRO [Concomitant]
     Dosage: TAKE WITHIN 15 MINUTES BEFORE OR IMMEDIATELY AFTER A MEAL
     Route: 058
  9. SOLU-MEDROL [Concomitant]
     Route: 042
     Dates: start: 20121222, end: 20121222
  10. ALBUTEROL [Concomitant]
     Dosage: 2 PUFFS
     Route: 055
     Dates: start: 20121222
  11. ZITHROMAX [Concomitant]
     Route: 048
     Dates: start: 20121222
  12. METOPROLOL [Concomitant]
     Dates: start: 20121222
  13. HEPARIN SODIUM [Concomitant]
     Route: 041
     Dates: start: 20121222
  14. ISOVUE 370 [Suspect]
     Indication: PULMONARY EMBOLISM
     Route: 042
     Dates: start: 20121222
  15. ISOVUE 370 [Suspect]
     Indication: DYSPNOEA
     Route: 042
     Dates: start: 20121222
  16. ISOVUE 370 [Suspect]
     Indication: FIBRIN D DIMER INCREASED
     Route: 042
     Dates: start: 20121222
  17. ISOVUE 370 [Suspect]
     Indication: ANGIOGRAM
     Route: 042
     Dates: start: 20121222

REACTIONS (1)
  - Anaphylactic reaction [Recovered/Resolved]
